FAERS Safety Report 4337363-1 (Version None)
Quarter: 2004Q2

REPORT INFORMATION
  Report Type: 
  Country: None (occurrence: None)
  Receive Date: 20040413
  Receipt Date: 20040227
  Transmission Date: 20050107
  Serious: Yes (Hospitalization)
  Sender: FDA-Public Use
  Company Number: 200411612US

PATIENT
  Sex: Female
  Weight: 63.6 kg

DRUGS (7)
  1. DDAVP [Suspect]
     Indication: DIABETES INSIPIDUS
     Dosage: DOSE: 1 SPRAY IN LEFT NOSTRIL
     Route: 045
     Dates: start: 20040121, end: 20040101
  2. TOPROL-XL [Concomitant]
     Dosage: DOSE: UNK
  3. PAXIL [Concomitant]
     Dosage: DOSE: UNK
  4. LORTAB [Concomitant]
     Dosage: DOSE: UNK
  5. VALIUM [Concomitant]
     Route: 048
  6. ESTRATEST [Concomitant]
     Dosage: DOSE: NOT PROVIDED
  7. PHENERGAN [Concomitant]
     Dosage: DOSE: NOT PROVIDED

REACTIONS (9)
  - ANAEMIA [None]
  - ASTHENIA [None]
  - EPISTAXIS [None]
  - HAEMORRHAGE [None]
  - HYPONATRAEMIA [None]
  - INAPPROPRIATE ANTIDIURETIC HORMONE SECRETION [None]
  - MEDICATION ERROR [None]
  - NAUSEA [None]
  - PLATELET COUNT INCREASED [None]
